FAERS Safety Report 17006335 (Version 1)
Quarter: 2019Q4

REPORT INFORMATION
  Report Type: Spontaneous
  Country: US (occurrence: US)
  Receive Date: 20190926
  Receipt Date: 20190926
  Transmission Date: 20200122
  Serious: Yes (Hospitalization)
  Sender: FDA-Public Use
  Company Number: None

PATIENT
  Age: 65 Year
  Sex: Male

DRUGS (1)
  1. IBUPROFEN. [Suspect]
     Active Substance: IBUPROFEN
     Indication: PAIN
     Route: 048
     Dates: start: 20181002, end: 20190705

REACTIONS (3)
  - Duodenal ulcer [None]
  - Gastrointestinal haemorrhage [None]
  - Haemorrhage [None]

NARRATIVE: CASE EVENT DATE: 20190708
